FAERS Safety Report 11416743 (Version 1)
Quarter: 2015Q3

REPORT INFORMATION
  Report Type: Spontaneous
  Country: US (occurrence: US)
  Receive Date: 20150825
  Receipt Date: 20150825
  Transmission Date: 20151125
  Serious: No
  Sender: FDA-Public Use
  Company Number: US-HORIZON-PEN-0142-2015

PATIENT
  Sex: Male

DRUGS (4)
  1. CELEBREX [Concomitant]
     Active Substance: CELECOXIB
     Route: 048
  2. PENNSAID [Suspect]
     Active Substance: DICLOFENAC SODIUM
     Indication: POLYARTHRITIS
     Dosage: 2 DROPS (NOT FULL PUMPS) TWICE DAILY
     Route: 061
     Dates: start: 20150617
  3. SIMVASTATIN. [Concomitant]
     Active Substance: SIMVASTATIN
  4. NEXIUM [Concomitant]
     Active Substance: ESOMEPRAZOLE MAGNESIUM

REACTIONS (7)
  - Musculoskeletal stiffness [Not Recovered/Not Resolved]
  - Off label use [Not Recovered/Not Resolved]
  - Application site bruise [Not Recovered/Not Resolved]
  - Off label use [Unknown]
  - Application site erythema [Not Recovered/Not Resolved]
  - Application site pruritus [Not Recovered/Not Resolved]
  - Application site swelling [Not Recovered/Not Resolved]

NARRATIVE: CASE EVENT DATE: 20150809
